FAERS Safety Report 4641141-3 (Version None)
Quarter: 2005Q1

REPORT INFORMATION
  Report Type: 
  Country: None (occurrence: None)
  Receive Date: 20050322
  Receipt Date: 20040712
  Transmission Date: 20050727
  Serious: Yes (Hospitalization)
  Sender: FDA-Public Use
  Company Number: HQWYE078214JUL04

PATIENT
  Age: 60 Year
  Sex: Male
  Weight: 81.72 kg

DRUGS (4)
  1. PROTONIX [Suspect]
     Indication: GASTROOESOPHAGEAL REFLUX DISEASE
     Dosage: 40 MG 2X PER 1 DAY, ORAL
     Route: 048
     Dates: start: 20040101, end: 20040101
  2. FLONASE [Concomitant]
  3. CLARINEX [Concomitant]
  4. AMBIEN [Concomitant]

REACTIONS (5)
  - ATRIAL FIBRILLATION [None]
  - HYPOCALCAEMIA [None]
  - NAUSEA [None]
  - VERTIGO [None]
  - VOMITING [None]
